FAERS Safety Report 17679901 (Version 6)
Quarter: 2020Q3

REPORT INFORMATION
  Report Type: Report from Study
  Country: None (occurrence: US)
  Receive Date: 20200417
  Receipt Date: 20200727
  Transmission Date: 20201102
  Serious: Yes (Hospitalization, Other)
  Sender: FDA-Public Use
  Company Number: US-ABBVIE-20K-163-3338783-00

PATIENT
  Age: 71 Year
  Sex: Female

DRUGS (4)
  1. HUMIRA [Suspect]
     Active Substance: ADALIMUMAB
     Indication: RHEUMATOID ARTHRITIS
     Dosage: CITRATE FREE
     Route: 058
     Dates: end: 202001
  2. DILAUDID [Suspect]
     Active Substance: HYDROMORPHONE HYDROCHLORIDE
     Indication: PRODUCT USED FOR UNKNOWN INDICATION
     Route: 065
  3. VICODIN [Suspect]
     Active Substance: ACETAMINOPHEN\HYDROCODONE BITARTRATE
     Indication: PRODUCT USED FOR UNKNOWN INDICATION
     Route: 048
  4. HUMIRA [Suspect]
     Active Substance: ADALIMUMAB
     Dosage: CITRATE FREE
     Route: 058

REACTIONS (24)
  - Amnesia [Recovering/Resolving]
  - Cholecystitis [Recovering/Resolving]
  - Cholelithiasis [Recovering/Resolving]
  - Hepatic enzyme abnormal [Not Recovered/Not Resolved]
  - Oropharyngeal pain [Unknown]
  - Dysstasia [Recovering/Resolving]
  - Internal haemorrhage [Not Recovered/Not Resolved]
  - Feeling abnormal [Recovering/Resolving]
  - Pruritus [Unknown]
  - Suspected COVID-19 [Not Recovered/Not Resolved]
  - Stress [Not Recovered/Not Resolved]
  - Blood pressure increased [Not Recovered/Not Resolved]
  - Urinary tract infection [Not Recovered/Not Resolved]
  - Illness [Unknown]
  - Body temperature abnormal [Unknown]
  - Diarrhoea [Not Recovered/Not Resolved]
  - Urinary tract infection [Recovering/Resolving]
  - Sepsis [Recovering/Resolving]
  - Gallbladder disorder [Not Recovered/Not Resolved]
  - Unresponsive to stimuli [Recovering/Resolving]
  - Adverse drug reaction [Recovered/Resolved]
  - Fall [Recovering/Resolving]
  - Cholelithiasis [Recovered/Resolved]
  - Cough [Unknown]

NARRATIVE: CASE EVENT DATE: 2019
